FAERS Safety Report 4685723-1 (Version None)
Quarter: 2005Q2

REPORT INFORMATION
  Report Type: 
  Country: None (occurrence: None)
  Receive Date: 20050608
  Receipt Date: 20050531
  Transmission Date: 20051028
  Serious: Yes (Other)
  Sender: FDA-Public Use
  Company Number: 200510978BWH

PATIENT
  Sex: Female

DRUGS (2)
  1. CIPRO IV [Suspect]
     Indication: DIVERTICULITIS
     Dosage: INTRAVENOUS
     Route: 042
  2. CIPRO [Suspect]
     Indication: DIVERTICULITIS
     Dosage: ORAL
     Route: 048

REACTIONS (12)
  - ARTHRALGIA [None]
  - ARTHRITIS [None]
  - AUTOIMMUNE DISORDER [None]
  - BACK PAIN [None]
  - BLISTER [None]
  - BLOOD TEST ABNORMAL [None]
  - FATIGUE [None]
  - IMMUNE SYSTEM DISORDER [None]
  - MYALGIA [None]
  - PNEUMONIA [None]
  - SWELLING [None]
  - TENDON RUPTURE [None]
